FAERS Safety Report 19910521 (Version 1)
Quarter: 2021Q4

REPORT INFORMATION
  Report Type: Spontaneous
  Country: US (occurrence: US)
  Receive Date: 20211004
  Receipt Date: 20211004
  Transmission Date: 20220303
  Serious: Yes (Other)
  Sender: FDA-Public Use
  Company Number: US-ABBVIE-21K-163-4097176-00

PATIENT
  Age: 74 Year
  Sex: Female
  Weight: 48.53 kg

DRUGS (5)
  1. HUMIRA [Suspect]
     Active Substance: ADALIMUMAB
     Indication: Crohn^s disease
     Route: 058
  2. VICODIN [Suspect]
     Active Substance: ACETAMINOPHEN\HYDROCODONE BITARTRATE
     Indication: Restless legs syndrome
     Dosage: TAKES HALF AT NIGHT
     Route: 048
  3. VICODIN [Suspect]
     Active Substance: ACETAMINOPHEN\HYDROCODONE BITARTRATE
     Indication: Partial seizures
  4. PFIZER-BIONTECH COVID-19 VACCINE [Suspect]
     Active Substance: TOZINAMERAN
     Indication: COVID-19 immunisation
     Dosage: SHOULDER, ON UPPER ARM, WAS PROBABLY LEFT ARM
     Route: 030
     Dates: start: 20210619, end: 20210619
  5. KEPPRA [Concomitant]
     Active Substance: LEVETIRACETAM
     Indication: Partial seizures
     Dosage: 500MG TABLET, ONE OF THOSE A DAY

REACTIONS (14)
  - Neoplasm malignant [Unknown]
  - Neck surgery [Unknown]
  - Procedural complication [Unknown]
  - Arthralgia [Unknown]
  - Neck pain [Unknown]
  - Neuropathy peripheral [Unknown]
  - Gait disturbance [Unknown]
  - Multiple fractures [Unknown]
  - Joint range of motion decreased [Unknown]
  - Musculoskeletal disorder [Unknown]
  - Adverse drug reaction [Unknown]
  - Visual impairment [Unknown]
  - Diplopia [Unknown]
  - Musculoskeletal stiffness [Unknown]

NARRATIVE: CASE EVENT DATE: 20180101
